FAERS Safety Report 4661889-4 (Version None)
Quarter: 2005Q2

REPORT INFORMATION
  Report Type: 
  Country: None (occurrence: None)
  Receive Date: 20050513
  Receipt Date: 20020207
  Transmission Date: 20051028
  Serious: Yes (Hospitalization, Disabling)
  Sender: FDA-Public Use
  Company Number: US-MERCK-0202USA00857

PATIENT
  Age: 47 Year
  Sex: Female
  Weight: 86 kg

DRUGS (23)
  1. VIOXX [Suspect]
     Indication: MENISCUS LESION
     Route: 048
     Dates: start: 20000901, end: 20020128
  2. VIOXX [Suspect]
     Indication: OSTEOARTHRITIS
     Route: 048
     Dates: start: 20000901, end: 20020128
  3. INDERAL LA [Concomitant]
     Indication: MIGRAINE
     Route: 065
     Dates: start: 19970101
  4. INDERAL LA [Concomitant]
     Indication: CARDIAC DISORDER
     Route: 065
     Dates: start: 19970101
  5. CLARITIN-D [Concomitant]
     Indication: SINUS DISORDER
     Route: 065
     Dates: start: 19970407, end: 20020128
  6. HUMIBID [Concomitant]
     Indication: SINUS DISORDER
     Route: 065
     Dates: end: 20020128
  7. PREVACID [Concomitant]
     Indication: GASTROOESOPHAGEAL REFLUX DISEASE
     Route: 065
     Dates: start: 20010628
  8. NASONEX [Concomitant]
     Indication: SINUS DISORDER
     Route: 065
     Dates: start: 19991227, end: 20020128
  9. DARVOCET-N 100 [Concomitant]
     Indication: PAIN
     Route: 065
     Dates: start: 19850101
  10. BACTRIM [Concomitant]
     Route: 065
  11. PSEUDOEPHEDRINE [Concomitant]
     Route: 065
  12. MAXZIDE [Concomitant]
     Indication: SWELLING
     Route: 065
     Dates: start: 19950101
  13. NAPROSYN [Concomitant]
     Route: 065
     Dates: start: 19850101, end: 19970101
  14. ENTEX LA [Concomitant]
     Route: 065
  15. VOLTAREN [Concomitant]
     Route: 065
     Dates: start: 19970101, end: 20010101
  16. VOLTAREN [Concomitant]
     Route: 048
     Dates: start: 20000927
  17. EVENING PRIMROSE OIL [Concomitant]
     Route: 065
     Dates: start: 19960101
  18. GLUCOSAMINE [Concomitant]
     Route: 065
     Dates: start: 19960101
  19. CHONDROITIN [Concomitant]
     Route: 065
     Dates: start: 19960101
  20. ZANTAC [Concomitant]
     Indication: DYSPEPSIA
     Route: 065
     Dates: start: 20001228
  21. SUDAFED 12 HOUR [Concomitant]
     Route: 065
  22. ASPIRIN [Concomitant]
     Route: 065
  23. NORCO [Concomitant]
     Route: 065
     Dates: start: 20001229

REACTIONS (22)
  - ACUTE MYOCARDIAL INFARCTION [None]
  - ANXIETY [None]
  - ARRHYTHMIA [None]
  - ARTERIOSPASM CORONARY [None]
  - BONE PAIN [None]
  - DYSPEPSIA [None]
  - ENDOMETRIOSIS [None]
  - HEADACHE [None]
  - INSOMNIA [None]
  - INTERVERTEBRAL DISC DISPLACEMENT [None]
  - MENISCUS LESION [None]
  - MITRAL VALVE INCOMPETENCE [None]
  - NEURALGIA [None]
  - PLEURITIC PAIN [None]
  - SACROILIITIS [None]
  - SINUSITIS [None]
  - STRESS [None]
  - TACHYARRHYTHMIA [None]
  - TENSION [None]
  - TRICUSPID VALVE INCOMPETENCE [None]
  - UTERINE LEIOMYOMA [None]
  - WEIGHT INCREASED [None]
